FAERS Safety Report 22046670 (Version 1)
Quarter: 2023Q1

REPORT INFORMATION
  Report Type: Spontaneous
  Country: IT (occurrence: IT)
  Receive Date: 20230228
  Receipt Date: 20230228
  Transmission Date: 20230418
  Serious: Yes (Hospitalization, Other)
  Sender: FDA-Public Use
  Company Number: None

PATIENT
  Age: 70 Year
  Sex: Female

DRUGS (5)
  1. FLUOROURACIL [Suspect]
     Active Substance: FLUOROURACIL
     Indication: Colon cancer
     Dates: start: 20210902, end: 20220302
  2. FLUOROURACIL [Suspect]
     Active Substance: FLUOROURACIL
     Indication: Colon cancer
     Dates: start: 20210902, end: 20220302
  3. BEVACIZUMAB [Suspect]
     Active Substance: BEVACIZUMAB
     Indication: Colon cancer
     Dates: start: 20210902, end: 20220302
  4. OXALIPLATIN [Suspect]
     Active Substance: OXALIPLATIN
     Indication: Colon cancer
     Dates: start: 20210902, end: 20220302
  5. LEVOLEUCOVORIN DISODIUM [Concomitant]
     Active Substance: LEVOLEUCOVORIN DISODIUM
     Indication: Product used for unknown indication
     Dates: start: 20210902, end: 20220302

REACTIONS (6)
  - Cardiotoxicity [Recovering/Resolving]
  - Mitral valve incompetence [Recovering/Resolving]
  - Left ventricular dilatation [Recovering/Resolving]
  - Cardiac contractility decreased [Recovering/Resolving]
  - Systolic dysfunction [Recovering/Resolving]
  - Dyspnoea exertional [Recovering/Resolving]

NARRATIVE: CASE EVENT DATE: 20220328
